FAERS Safety Report 23802817 (Version 1)
Quarter: 2024Q2

REPORT INFORMATION
  Report Type: Report from Study
  Country: ES (occurrence: ES)
  Receive Date: 20240501
  Receipt Date: 20240501
  Transmission Date: 20240716
  Serious: Yes (Other)
  Sender: FDA-Public Use
  Company Number: ES-AMNEAL PHARMACEUTICALS-2023-AMRX-04706

PATIENT

DRUGS (6)
  1. ONGENTYS [Suspect]
     Active Substance: OPICAPONE
     Indication: Product used for unknown indication
     Dosage: UNK (THE DOCTOR PRESCRIBED IT 6 YEARS AGO)
     Route: 065
  2. INBRIJA [Suspect]
     Active Substance: LEVODOPA
     Indication: Product used for unknown indication
     Dosage: 33 MILLIGRAM, BID AT 9.30-10H AND AT 18.30H; HE USED 1 WHOLE BOX OF LNBRIJA AND HALF OF ANOTHER
  3. OZEMPIC [Suspect]
     Active Substance: SEMAGLUTIDE
     Indication: Product used for unknown indication
     Dosage: UNK
     Route: 065
  4. OZEMPIC [Suspect]
     Active Substance: SEMAGLUTIDE
     Dosage: UNK
     Route: 065
  5. BENSERAZIDE HYDROCHLORIDE\LEVODOPA [Suspect]
     Active Substance: BENSERAZIDE HYDROCHLORIDE\LEVODOPA
     Indication: Product used for unknown indication
     Dosage: UNK, QID ( AT 8-12-16-20H, PAT MODIFIES MORNING AT 6-6:30 G AND IN AFTERNOON 15:30)
  6. BENSERAZIDE HYDROCHLORIDE\LEVODOPA [Suspect]
     Active Substance: BENSERAZIDE HYDROCHLORIDE\LEVODOPA
     Dosage: UNK, QID ( AT 8-12-16-20H, BUT PATIENT MODIFIES IT IN THE MORNING AT 6-6:30 G AND IN THE AFTERNOON A

REACTIONS (25)
  - Parkinson^s disease [Unknown]
  - Asthenia [Not Recovered/Not Resolved]
  - Loss of personal independence in daily activities [Unknown]
  - Erythema [Recovered/Resolved]
  - Malaise [Recovered/Resolved]
  - Speech disorder [Unknown]
  - Palpitations [Unknown]
  - Malaise [Not Recovered/Not Resolved]
  - Eye disorder [Recovered/Resolved]
  - Fatigue [Recovered/Resolved]
  - Asthenia [Recovered/Resolved]
  - Cough [Recovered/Resolved]
  - Tremor [Unknown]
  - Gait disturbance [Recovered/Resolved]
  - Speech disorder [Unknown]
  - Illness [Unknown]
  - Inhibitory drug interaction [None]
  - Heart rate increased [Recovered/Resolved]
  - Agitation [Unknown]
  - Therapeutic product effect decreased [Unknown]
  - Drug effect less than expected [Unknown]
  - Patient dissatisfaction with treatment [Unknown]
  - Inappropriate schedule of product administration [Unknown]
  - Device difficult to use [Unknown]
  - Incorrect dose administered by device [Unknown]

NARRATIVE: CASE EVENT DATE: 20230303
